FAERS Safety Report 6699533-7 (Version None)
Quarter: 2010Q2

REPORT INFORMATION
  Report Type: 
  Country: None (occurrence: None)
  Receive Date: 20100427
  Receipt Date: 20100427
  Transmission Date: 20101027
  Serious: Yes (Hospitalization, Disabling, Other)
  Sender: FDA-Public Use
  Company Number: None

PATIENT

DRUGS (2)
  1. TRAMADOL HCL [Suspect]
     Indication: BACK PAIN
     Dosage: 1 TAB EVERY 4 HOURS
     Dates: start: 20070101, end: 20100101
  2. TRAMADOL HCL [Suspect]
     Indication: SCOLIOSIS
     Dosage: 1 TAB EVERY 4 HOURS
     Dates: start: 20070101, end: 20100101

REACTIONS (2)
  - PRODUCT LABEL ISSUE [None]
  - WITHDRAWAL SYNDROME [None]
